FAERS Safety Report 10244657 (Version 1)
Quarter: 2014Q2

REPORT INFORMATION
  Report Type: Spontaneous
  Country: GB (occurrence: GB)
  Receive Date: 20140618
  Receipt Date: 20140618
  Transmission Date: 20141212
  Serious: Yes (Other)
  Sender: FDA-Public Use
  Company Number: GB-GLAXOSMITHKLINE-B1003359A

PATIENT
  Sex: Female

DRUGS (2)
  1. IMIGRAN [Suspect]
     Indication: MIGRAINE
     Route: 048
     Dates: start: 20140529, end: 20140529
  2. NAPROXEN [Concomitant]
     Indication: HEADACHE
     Dosage: 1000MG PER DAY
     Route: 048

REACTIONS (4)
  - Dizziness [Recovered/Resolved]
  - Discomfort [Recovered/Resolved]
  - Cyanosis [Recovered/Resolved]
  - Chest discomfort [Recovered/Resolved]
